FAERS Safety Report 4707216-5 (Version None)
Quarter: 2005Q2

REPORT INFORMATION
  Report Type: 
  Country: None (occurrence: None)
  Receive Date: 20050630
  Receipt Date: 20050613
  Transmission Date: 20051028
  Serious: Yes (Disabling)
  Sender: FDA-Public Use
  Company Number: MPS1-10157

PATIENT
  Age: 12 Year
  Sex: Female
  Weight: 61.7 kg

DRUGS (1)
  1. ALDURAZYME [Suspect]
     Indication: MUCOPOLYSACCHARIDOSIS I
     Dosage: 0.58 MG/KG QWK IV
     Route: 042
     Dates: start: 20030611

REACTIONS (4)
  - DESMOID TUMOUR [None]
  - DYSSTASIA [None]
  - NEOPLASM RECURRENCE [None]
  - WALKING DISABILITY [None]
